FAERS Safety Report 20009002 (Version 1)
Quarter: 2021Q4

REPORT INFORMATION
  Report Type: Spontaneous
  Country: US (occurrence: US)
  Receive Date: 20211029
  Receipt Date: 20211029
  Transmission Date: 20220303
  Serious: No
  Sender: FDA-Public Use
  Company Number: US-DRREDDYS-SPO/USA/21/0143061

PATIENT
  Age: 14 Year
  Sex: Female

DRUGS (2)
  1. ZENATANE [Suspect]
     Active Substance: ISOTRETINOIN
     Indication: Product used for unknown indication
     Dosage: RMA ISSUE DATE: 30 APRIL 2021 1:13:07 PM, 04 JUNE 2021 12:23:08 PM, 12 JULY 2021 10:39:03 AM
  2. ZENATANE [Suspect]
     Active Substance: ISOTRETINOIN
     Dosage: RMA ISSUE DATE: 18 AUGUST 2021 1:09:31 PM, 17 SEPTEMBER 2021 5:52:24 PM

REACTIONS (1)
  - Lipids increased [Unknown]
